FAERS Safety Report 8782908 (Version 1)
Quarter: 2012Q4

REPORT INFORMATION
  Report Type: 
  Country: NL (occurrence: NL)
  Receive Date: 20120913
  Receipt Date: 20120913
  Transmission Date: 20130627
  Serious: Yes (Hospitalization)
  Sender: FDA-Public Use
  Company Number: PHHY2012NL079146

PATIENT
  Age: 44 Year
  Sex: Male

DRUGS (7)
  1. MIRTAZAPINE [Suspect]
     Dosage: 1 DF
     Route: 048
     Dates: start: 20120814, end: 20120901
  2. PROMETHAZINE [Concomitant]
     Dosage: 25 mg, UNK
  3. DICLOFENAC [Concomitant]
  4. TRAMADOL [Concomitant]
     Dosage: 1 DF, UNK
  5. PRAMIPEXOLE [Concomitant]
     Dosage: 1 DF, BID
     Dates: start: 201206
  6. DIAZEPAM [Concomitant]
     Dosage: 1 DF, TID
     Dates: start: 201011
  7. OMEPRAZOLE [Concomitant]
     Dosage: 1 DF, UNK
     Dates: start: 20120730

REACTIONS (5)
  - Vision blurred [Recovering/Resolving]
  - Coma [Recovering/Resolving]
  - Dizziness [Recovering/Resolving]
  - Fatigue [Recovering/Resolving]
  - Nausea [Recovering/Resolving]
